FAERS Safety Report 8122825-1 (Version None)
Quarter: 2012Q1

REPORT INFORMATION
  Report Type: 
  Country: None (occurrence: None)
  Receive Date: 20120208
  Receipt Date: 20120207
  Transmission Date: 20120608
  Serious: Yes (Death, Other)
  Sender: FDA-Public Use
  Company Number: JP-PFIZER INC-2011276094

PATIENT
  Age: 41 Year
  Sex: Male
  Weight: 57.3 kg

DRUGS (22)
  1. TEMSIROLIMUS [Suspect]
     Dosage: 25 MG, UNK
     Route: 042
     Dates: start: 20110913, end: 20110913
  2. CHLOR-TRIMETON [Concomitant]
     Dosage: 1 % 1 ML, ONCE DAILY
     Route: 042
     Dates: start: 20110913, end: 20110913
  3. TEMSIROLIMUS [Suspect]
     Dosage: 25 MG, UNK
     Route: 042
     Dates: start: 20110817, end: 20110817
  4. TEMSIROLIMUS [Suspect]
     Dosage: 25 MG, UNK
     Route: 042
     Dates: start: 20110823, end: 20110823
  5. TEMSIROLIMUS [Suspect]
     Dosage: 25 MG, UNK
     Route: 042
     Dates: start: 20110921, end: 20110921
  6. CHLOR-TRIMETON [Concomitant]
     Indication: PROPHYLAXIS
     Dosage: 1 % 1 ML, ONCE DAILY
     Route: 042
     Dates: start: 20110712, end: 20110712
  7. CHLOR-TRIMETON [Concomitant]
     Dosage: 1 % 1 ML, ONCE DAILY
     Route: 042
     Dates: start: 20110719, end: 20110719
  8. CHLOR-TRIMETON [Concomitant]
     Dosage: 1 % 1 ML, ONCE DAILY
     Route: 042
     Dates: start: 20110906, end: 20110906
  9. CHLOR-TRIMETON [Concomitant]
     Dosage: 1 % 1 ML, ONCE DAILY
     Route: 042
     Dates: start: 20110921, end: 20110921
  10. TEMSIROLIMUS [Suspect]
     Dosage: 25 MG, UNK
     Route: 042
     Dates: start: 20110719, end: 20110719
  11. CHLOR-TRIMETON [Concomitant]
     Dosage: 1 % 1 ML, ONCE DAILY
     Route: 042
     Dates: start: 20110726, end: 20110726
  12. CHLOR-TRIMETON [Concomitant]
     Dosage: 1 % 1 ML, ONCE DAILY
     Route: 042
     Dates: start: 20110809, end: 20110809
  13. CHLOR-TRIMETON [Concomitant]
     Dosage: 1 % 1 ML, ONCE DAILY
     Route: 042
     Dates: start: 20110830, end: 20110830
  14. TEMSIROLIMUS [Suspect]
     Dosage: 25 MG, UNK
     Route: 042
     Dates: start: 20110802, end: 20110802
  15. CHLOR-TRIMETON [Concomitant]
     Dosage: 1 % 1 ML, ONCE DAILY
     Route: 042
     Dates: start: 20110802, end: 20110802
  16. TEMSIROLIMUS [Suspect]
     Indication: RENAL CELL CARCINOMA
     Dosage: 25 MG, UNK
     Route: 042
     Dates: start: 20110712, end: 20110712
  17. TEMSIROLIMUS [Suspect]
     Dosage: 25 MG, UNK
     Route: 042
     Dates: start: 20110906, end: 20110906
  18. TEMSIROLIMUS [Suspect]
     Dosage: 25 MG, UNK
     Route: 042
     Dates: start: 20110809, end: 20110809
  19. TEMSIROLIMUS [Suspect]
     Dosage: 25 MG, UNK
     Route: 042
     Dates: start: 20110830, end: 20110830
  20. CHLOR-TRIMETON [Concomitant]
     Dosage: 1 % 1 ML, ONCE DAILY
     Route: 042
     Dates: start: 20110817, end: 20110817
  21. CHLOR-TRIMETON [Concomitant]
     Dosage: 1 % 1 ML, ONCE DAILY
     Route: 042
     Dates: start: 20110823, end: 20110823
  22. TEMSIROLIMUS [Suspect]
     Dosage: 25 MG, UNK
     Route: 042
     Dates: start: 20110726, end: 20110726

REACTIONS (3)
  - FUNGAL INFECTION [None]
  - DISEASE PROGRESSION [None]
  - RENAL CELL CARCINOMA [None]
